FAERS Safety Report 10100584 (Version 1)
Quarter: 2014Q2

REPORT INFORMATION
  Report Type: Spontaneous
  Country: FR (occurrence: FR)
  Receive Date: 20140423
  Receipt Date: 20140423
  Transmission Date: 20141212
  Serious: Yes (Other)
  Sender: FDA-Public Use
  Company Number: FR-BAXTER-2014BAX019845

PATIENT
  Age: 3 Month
  Sex: 0

DRUGS (1)
  1. KIOVIG, 100 MG/ML, SOLUTION POUR PERFUSION [Suspect]
     Indication: KAWASAKI^S DISEASE
     Route: 042

REACTIONS (2)
  - Pyrexia [Recovered/Resolved]
  - Coronary artery dilatation [Recovered/Resolved]
